FAERS Safety Report 6432082-X (Version None)
Quarter: 2009Q4

REPORT INFORMATION
  Report Type: 
  Country: None (occurrence: None)
  Receive Date: 20091109
  Receipt Date: 20091028
  Transmission Date: 20100525
  Serious: Yes (Hospitalization)
  Sender: FDA-Public Use
  Company Number: US-ROCHE-665692

PATIENT
  Age: 10 Year

DRUGS (2)
  1. TAMIFLU [Suspect]
     Indication: H1N1 INFLUENZA
     Dosage: ROUTE: ORAL
     Route: 050
  2. TAMIFLU [Suspect]
     Dosage: ROUTE: NASOGASTRIC, FREQUENCY: Q 12
     Route: 050

REACTIONS (8)
  - COUGH [None]
  - HYPOXIA [None]
  - LYMPHOPENIA [None]
  - NEUTROPENIA [None]
  - PATHOGEN RESISTANCE [None]
  - PNEUMONIA [None]
  - PYREXIA [None]
  - RHINORRHOEA [None]
